FAERS Safety Report 18659955 (Version 4)
Quarter: 2021Q3

REPORT INFORMATION
  Report Type: Spontaneous
  Country: US (occurrence: US)
  Receive Date: 20201224
  Receipt Date: 20210728
  Transmission Date: 20211014
  Serious: Yes (Other)
  Sender: FDA-Public Use
  Company Number: US-PFIZER INC-2020506293

PATIENT
  Age: 81 Year
  Sex: Female
  Weight: 56.7 kg

DRUGS (1)
  1. LATANOPROST. [Suspect]
     Active Substance: LATANOPROST
     Dosage: UNK

REACTIONS (6)
  - Syncope [Unknown]
  - Intraocular pressure increased [Unknown]
  - Malaise [Unknown]
  - Drug ineffective [Unknown]
  - Impaired driving ability [Unknown]
  - Dizziness [Unknown]
